FAERS Safety Report 24066441 (Version 1)
Quarter: 2024Q3

REPORT INFORMATION
  Report Type: Spontaneous
  Country: FR (occurrence: None)
  Receive Date: 20240709
  Receipt Date: 20240709
  Transmission Date: 20241016
  Serious: Yes (Death, Other)
  Sender: ASTRAZENECA
  Company Number: 2024A156087

PATIENT
  Age: 68 Year
  Sex: Male
  Weight: 98 kg

DRUGS (1)
  1. DURVALUMAB [Suspect]
     Active Substance: DURVALUMAB
     Indication: Non-small cell lung cancer
     Route: 042

REACTIONS (6)
  - Dyspnoea [Fatal]
  - Haematotoxicity [Unknown]
  - Malignant neoplasm progression [Unknown]
  - Adrenal insufficiency [Unknown]
  - Dysphagia [Unknown]
  - Neuropathy peripheral [Unknown]
